FAERS Safety Report 16324772 (Version 1)
Quarter: 2019Q2

REPORT INFORMATION
  Report Type: Spontaneous
  Country: US (occurrence: US)
  Receive Date: 20190516
  Receipt Date: 20190516
  Transmission Date: 20190711
  Serious: Yes (Hospitalization)
  Sender: FDA-Public Use
  Company Number: None

PATIENT
  Age: 71 Year
  Sex: Female
  Weight: 60.48 kg

DRUGS (14)
  1. 5FU [Concomitant]
     Active Substance: FLUOROURACIL
     Dates: start: 20190206, end: 20190208
  2. GRANISETRON ER [Concomitant]
     Dates: start: 20190206, end: 20190206
  3. DEXAMETHASONE. [Concomitant]
     Active Substance: DEXAMETHASONE
     Dates: start: 20190206, end: 20190206
  4. CALTRATE [Concomitant]
     Active Substance: CALCIUM CARBONATE
  5. OXALIPLATIN. [Suspect]
     Active Substance: OXALIPLATIN
     Indication: PANCREATIC CARCINOMA
     Dosage: ?          OTHER FREQUENCY:EVERY 14 DAYS;?
     Route: 042
     Dates: start: 20190206, end: 20190208
  6. LEUCOVORIN. [Concomitant]
     Active Substance: LEUCOVORIN
     Dates: start: 20190206, end: 20190208
  7. FOLIC ACID. [Concomitant]
     Active Substance: FOLIC ACID
  8. METHOTREXATE. [Concomitant]
     Active Substance: METHOTREXATE
  9. SIMVASTATIN. [Concomitant]
     Active Substance: SIMVASTATIN
  10. NAPROSYN [Concomitant]
     Active Substance: NAPROXEN
  11. PROLIA [Concomitant]
     Active Substance: DENOSUMAB
  12. IRINOTECAN [Suspect]
     Active Substance: IRINOTECAN
     Indication: PANCREATIC CARCINOMA
     Dosage: ?          OTHER FREQUENCY:EVERY 14 DAYS;?
     Route: 042
     Dates: start: 20190206, end: 20190208
  13. ATROPINE. [Concomitant]
     Active Substance: ATROPINE
     Dates: start: 20190206, end: 20190206
  14. OMEPRAZOLE. [Concomitant]
     Active Substance: OMEPRAZOLE

REACTIONS (12)
  - Nausea [None]
  - Febrile neutropenia [None]
  - Anaemia [None]
  - Deep vein thrombosis [None]
  - Vomiting [None]
  - Constipation [None]
  - Colitis [None]
  - Diarrhoea [None]
  - Thrombosis prophylaxis [None]
  - Hyperglycaemia [None]
  - Hypercalcaemia [None]
  - Hypernatraemia [None]

NARRATIVE: CASE EVENT DATE: 20190215
